FAERS Safety Report 10287888 (Version 1)
Quarter: 2014Q3

REPORT INFORMATION
  Report Type: Spontaneous
  Country: CN (occurrence: None)
  Receive Date: 20140707
  Receipt Date: 20140707
  Transmission Date: 20150326
  Serious: Yes (Hospitalization)
  Sender: FDA-Public Use
  Company Number: CN-AIKEM-000635

PATIENT
  Age: 77 Year
  Sex: Female

DRUGS (3)
  1. MYCOPHENOLATE MOFETIL (MYCOPHENOLATE MOFETIL) [Suspect]
     Active Substance: MYCOPHENOLATE MOFETIL
     Indication: VASCULITIS
  2. PREDNISONE (PREDNISONE) [Suspect]
     Active Substance: PREDNISONE
     Indication: VASCULITIS
  3. METHYLPREDNISOLONE [Suspect]
     Active Substance: METHYLPREDNISOLONE
     Indication: VASCULITIS
     Dosage: 1GM/DAY.

REACTIONS (2)
  - Pneumocystis jirovecii pneumonia [None]
  - Lymphopenia [None]
